FAERS Safety Report 12522096 (Version 1)
Quarter: 2016Q3

REPORT INFORMATION
  Report Type: Report from Study
  Country: US (occurrence: US)
  Receive Date: 20160701
  Receipt Date: 20160701
  Transmission Date: 20161109
  Serious: Yes (Life-Threatening, Hospitalization)
  Sender: FDA-Public Use
  Company Number: US-009507513-1606USA011715

PATIENT
  Age: 53 Year
  Sex: Female
  Weight: 140.6 kg

DRUGS (2)
  1. INTERFERON ALFA-2B [Suspect]
     Active Substance: INTERFERON ALFA-2B
     Indication: MALIGNANT MELANOMA
     Dosage: 52 MILLION U, QD M-F FOR 4 WEEK
     Route: 042
     Dates: start: 20160613, end: 20160617
  2. INTERFERON ALFA-2B [Suspect]
     Active Substance: INTERFERON ALFA-2B
     Dosage: 52 MILLION UNITS, M-F FOR 4 WEEK
     Route: 042
     Dates: start: 20160627

REACTIONS (1)
  - Sepsis [Recovered/Resolved]

NARRATIVE: CASE EVENT DATE: 20160620
